FAERS Safety Report 6073911-1 (Version None)
Quarter: 2009Q1

REPORT INFORMATION
  Report Type: 
  Country: None (occurrence: None)
  Receive Date: 20090211
  Receipt Date: 20090130
  Transmission Date: 20090719
  Serious: Yes (Hospitalization)
  Sender: FDA-Public Use
  Company Number: JP-MERCK-0902USA00494

PATIENT
  Age: 84 Year
  Sex: Male

DRUGS (6)
  1. PEPCID RPD [Suspect]
     Route: 048
     Dates: start: 20080130, end: 20080703
  2. ASPIRIN [Concomitant]
     Route: 065
     Dates: start: 20080130
  3. DIOVAN [Concomitant]
     Route: 065
     Dates: start: 20080130
  4. PANALDINE [Concomitant]
     Route: 065
     Dates: start: 20080130
  5. ZOCOR [Concomitant]
     Route: 048
     Dates: start: 20080130
  6. KREMEZIN [Concomitant]
     Route: 065
     Dates: start: 20080130

REACTIONS (1)
  - DYSKINESIA [None]
